FAERS Safety Report 5688471-4 (Version None)
Quarter: 2008Q1

REPORT INFORMATION
  Report Type: 
  Country: None (occurrence: None)
  Receive Date: 20080331
  Receipt Date: 20071214
  Transmission Date: 20080703
  Serious: Yes (Other)
  Sender: FDA-Public Use
  Company Number: US-BAYER-US-2007-040038

PATIENT
  Age: 43 Year
  Sex: Female
  Weight: 131 kg

DRUGS (1)
  1. BETASERON [Suspect]
     Indication: RELAPSING-REMITTING MULTIPLE SCLEROSIS
     Dosage: UNIT DOSE: 4 MIU
     Route: 058
     Dates: start: 20070724, end: 20071010

REACTIONS (1)
  - HYPERSENSITIVITY [None]
